FAERS Safety Report 9749047 (Version 1)
Quarter: 2013Q4

REPORT INFORMATION
  Report Type: Spontaneous
  Country: US (occurrence: US)
  Receive Date: 20131212
  Receipt Date: 20131212
  Transmission Date: 20140711
  Serious: No
  Sender: FDA-Public Use
  Company Number: US-INCYTE CORPORATION-2013IN002142

PATIENT
  Sex: Male

DRUGS (8)
  1. JAKAFI [Suspect]
     Indication: MYELOFIBROSIS
     Dosage: 20 MG, BID
     Route: 048
     Dates: start: 20130808
  2. NIASPAN [Concomitant]
  3. SIMVASTATIN [Concomitant]
  4. HYDROCODONE [Concomitant]
  5. ALPRAZOLAM [Concomitant]
  6. MULTIVITAMIN [Concomitant]
  7. VITAMIN C [Concomitant]
  8. IBUPROFEN [Concomitant]

REACTIONS (2)
  - Pruritus [Unknown]
  - Headache [Unknown]
